FAERS Safety Report 19117582 (Version 1)
Quarter: 2021Q2

REPORT INFORMATION
  Report Type: Spontaneous
  Country: AR (occurrence: AR)
  Receive Date: 20210409
  Receipt Date: 20210409
  Transmission Date: 20210717
  Serious: Yes (Other)
  Sender: FDA-Public Use
  Company Number: AR-ASTRAZENECA-2021A267171

PATIENT
  Age: 51 Year
  Sex: Female

DRUGS (5)
  1. TAXANES [Concomitant]
     Active Substance: UNSPECIFIED INGREDIENT
     Indication: LUNG ADENOCARCINOMA
  2. ETOPOSIDE. [Concomitant]
     Active Substance: ETOPOSIDE
     Indication: LUNG ADENOCARCINOMA
  3. GEFITINIB. [Suspect]
     Active Substance: GEFITINIB
     Indication: LUNG ADENOCARCINOMA
     Route: 048
  4. RADIATION THERAPY [Concomitant]
     Active Substance: RADIATION THERAPY
     Indication: LUNG ADENOCARCINOMA
  5. GEFITINIB. [Suspect]
     Active Substance: GEFITINIB
     Indication: LUNG ADENOCARCINOMA
     Route: 048

REACTIONS (4)
  - Malignant neoplasm progression [Unknown]
  - Acquired gene mutation [Unknown]
  - Malignant transformation [Unknown]
  - Drug resistance [Unknown]
